FAERS Safety Report 19877424 (Version 1)
Quarter: 2021Q3

REPORT INFORMATION
  Report Type: Spontaneous
  Country: JP (occurrence: JP)
  Receive Date: 20210923
  Receipt Date: 20210923
  Transmission Date: 20211014
  Serious: Yes (Other)
  Sender: FDA-Public Use
  Company Number: JP-PFIZER INC-202101244487

PATIENT

DRUGS (1)
  1. GABAPEN [Suspect]
     Active Substance: GABAPENTIN
     Dosage: UNK
     Route: 048

REACTIONS (2)
  - Myoclonic epilepsy [Unknown]
  - Weight decreased [Unknown]
